FAERS Safety Report 10913640 (Version 1)
Quarter: 2015Q1

REPORT INFORMATION
  Report Type: Spontaneous
  Country: US (occurrence: None)
  Receive Date: 20150310
  Receipt Date: 20150310
  Transmission Date: 20150721
  Serious: No
  Sender: FDA-Public Use
  Company Number: None

PATIENT
  Age: 73 Year
  Sex: Male

DRUGS (7)
  1. LACTULOSE. [Concomitant]
     Active Substance: LACTULOSE
  2. FUROSEMIDE. [Concomitant]
     Active Substance: FUROSEMIDE
  3. GENRLAC [Concomitant]
  4. ZYTIGA [Suspect]
     Active Substance: ABIRATERONE ACETATE
     Indication: PROSTATE CANCER
     Route: 048
     Dates: start: 20150108
  5. SIMVASTATIN. [Concomitant]
     Active Substance: SIMVASTATIN
  6. DICLOFENAC [Concomitant]
     Active Substance: DICLOFENAC
  7. PREDNISONE. [Concomitant]
     Active Substance: PREDNISONE

REACTIONS (3)
  - Muscle spasms [None]
  - Middle insomnia [None]
  - Thrombosis [None]

NARRATIVE: CASE EVENT DATE: 20150108
